FAERS Safety Report 13649060 (Version 1)
Quarter: 2017Q2

REPORT INFORMATION
  Report Type: Spontaneous
  Country: US (occurrence: US)
  Receive Date: 20170613
  Receipt Date: 20170613
  Transmission Date: 20170830
  Serious: Yes (Other)
  Sender: FDA-Public Use
  Company Number: US-TARO-2017TAR00477

PATIENT
  Sex: Male

DRUGS (1)
  1. AMIODARONE HCL TABLET 200 MG [Suspect]
     Active Substance: AMIODARONE HYDROCHLORIDE
     Indication: ATRIAL FIBRILLATION
     Dosage: UNK
     Route: 048
     Dates: start: 201410

REACTIONS (14)
  - Cough [Unknown]
  - Abdominal pain [Unknown]
  - Heart rate abnormal [Unknown]
  - Weight decreased [Unknown]
  - Off label use [Unknown]
  - Hyperthyroidism [Unknown]
  - Nausea [Unknown]
  - Discomfort [Unknown]
  - Thyrotoxic crisis [Unknown]
  - Depression [Unknown]
  - Asthenia [Unknown]
  - Dyspnoea [Unknown]
  - Restlessness [Unknown]
  - Fatigue [Unknown]

NARRATIVE: CASE EVENT DATE: 201610
